FAERS Safety Report 25346163 (Version 2)
Quarter: 2025Q2

REPORT INFORMATION
  Report Type: Spontaneous
  Country: US (occurrence: US)
  Receive Date: 20250522
  Receipt Date: 20250530
  Transmission Date: 20250716
  Serious: No
  Sender: ROCHE
  Company Number: US-ROCHE-10000285706

PATIENT
  Sex: Female

DRUGS (2)
  1. XOLAIR [Suspect]
     Active Substance: OMALIZUMAB
     Indication: Asthma
     Route: 058
     Dates: start: 202502
  2. DILTIAZEM [Concomitant]
     Active Substance: DILTIAZEM

REACTIONS (2)
  - Asthma [Recovered/Resolved]
  - Sneezing [Recovered/Resolved]
